FAERS Safety Report 8401528-X (Version None)
Quarter: 2012Q2

REPORT INFORMATION
  Report Type: 
  Country: None (occurrence: None)
  Receive Date: 20120601
  Receipt Date: 20120524
  Transmission Date: 20120825
  Serious: No
  Sender: FDA-Public Use
  Company Number: US-TEVA-340342USA

PATIENT
  Sex: Male
  Weight: 54.026 kg

DRUGS (6)
  1. ESTRADIOL [Concomitant]
     Route: 048
  2. LAMOTRIGINE [Concomitant]
     Route: 048
  3. ATENOLOL [Concomitant]
     Route: 048
  4. METHYLPHENIDATE HCL [Concomitant]
     Route: 048
  5. COPAXONE [Suspect]
     Indication: MULTIPLE SCLEROSIS
     Dosage: 20 MILLIGRAM;
     Route: 058
  6. LORAZEPAM [Concomitant]
     Route: 048

REACTIONS (2)
  - SOMNOLENCE [None]
  - MALAISE [None]
